FAERS Safety Report 22141647 (Version 1)
Quarter: 2023Q1

REPORT INFORMATION
  Report Type: Report from Study
  Country: TN (occurrence: TN)
  Receive Date: 20230327
  Receipt Date: 20230327
  Transmission Date: 20230417
  Serious: Yes (Hospitalization)
  Sender: FDA-Public Use
  Company Number: TN-ABBVIE-4704615

PATIENT
  Age: 35 Year
  Sex: Male

DRUGS (4)
  1. HUMIRA [Suspect]
     Active Substance: ADALIMUMAB
     Indication: Crohn^s disease
     Dosage: STRENGTH:40MG, LAST ADMIN DATE: END OF OCT 2021
     Route: 058
     Dates: start: 202103, end: 202110
  2. HUMIRA [Suspect]
     Active Substance: ADALIMUMAB
     Dosage: LOADING DOSE, ONCE , STRENGTH:40MG
     Route: 058
     Dates: start: 20200512, end: 20200512
  3. HUMIRA [Suspect]
     Active Substance: ADALIMUMAB
     Dosage: LOADING DOSE, ONCE , STRENGTH:40MG
     Route: 058
     Dates: start: 20200526, end: 20200526
  4. HUMIRA [Suspect]
     Active Substance: ADALIMUMAB
     Dosage: STRENGTH:40MG
     Route: 058
     Dates: start: 20200609, end: 20210211

REACTIONS (1)
  - C-reactive protein increased [Unknown]

NARRATIVE: CASE EVENT DATE: 20230317
